FAERS Safety Report 11568207 (Version 3)
Quarter: 2016Q1

REPORT INFORMATION
  Report Type: Spontaneous
  Country: US (occurrence: US)
  Receive Date: 20150929
  Receipt Date: 20160108
  Transmission Date: 20160525
  Serious: Yes (Hospitalization)
  Sender: FDA-Public Use
  Company Number: US-BAYER-2015-432334

PATIENT
  Age: 36 Year
  Sex: Female
  Weight: 54.42 kg

DRUGS (3)
  1. MIRENA [Suspect]
     Active Substance: LEVONORGESTREL
     Indication: MENORRHAGIA
  2. MIRENA [Suspect]
     Active Substance: LEVONORGESTREL
     Indication: CONTRACEPTION
     Dosage: 20 MCG/24HR, CONT
     Route: 015
     Dates: start: 20111108, end: 20130118
  3. PROZAC [Concomitant]
     Active Substance: FLUOXETINE HYDROCHLORIDE

REACTIONS (10)
  - Device difficult to use [None]
  - Abdominal pain lower [None]
  - Psychological trauma [None]
  - Uterine perforation [None]
  - Injury [None]
  - Pelvic pain [None]
  - Dyspareunia [None]
  - Device dislocation [None]
  - Drug ineffective [None]
  - Device failure [None]

NARRATIVE: CASE EVENT DATE: 20130116
